FAERS Safety Report 7288898-3 (Version None)
Quarter: 2011Q1

REPORT INFORMATION
  Report Type: 
  Country: None (occurrence: None)
  Receive Date: 20110211
  Receipt Date: 20110203
  Transmission Date: 20110831
  Serious: Yes (Other)
  Sender: FDA-Public Use
  Company Number: BR-PFIZER INC-2010175287

PATIENT
  Age: 57 Year
  Sex: Female
  Weight: 50 kg

DRUGS (8)
  1. BETAGAN [Suspect]
  2. XALATAN [Suspect]
     Indication: GLAUCOMA
     Dosage: 1 DROP [1.5UG LATANOPROST / 150UG TIMOLOL MALEATE] PER DAY
     Route: 047
     Dates: start: 20100827, end: 20100830
  3. RIVOTRIL [Concomitant]
     Indication: FEELING OF RELAXATION
     Dosage: UNK
     Dates: start: 20100901
  4. XALATAN [Suspect]
     Indication: GLAUCOMA
     Dosage: 1.5 UG, 1X/DAY
     Route: 047
     Dates: start: 20101001
  5. INSULIN GLULISINE [Concomitant]
     Indication: TYPE 1 DIABETES MELLITUS
     Dosage: UNK
  6. ALPHAGAN [Suspect]
  7. INSULIN DETEMIR [Concomitant]
  8. CAPTOPRIL [Concomitant]
     Indication: HYPERTENSION
     Dosage: UNK
     Dates: start: 20080101

REACTIONS (7)
  - SENSATION OF FOREIGN BODY [None]
  - HYPERSENSITIVITY [None]
  - EYELID OEDEMA [None]
  - DRUG INEFFECTIVE [None]
  - EYE IRRITATION [None]
  - MYDRIASIS [None]
  - EYE DISORDER [None]
